FAERS Safety Report 13554760 (Version 1)
Quarter: 2017Q2

REPORT INFORMATION
  Report Type: Spontaneous
  Country: US (occurrence: US)
  Receive Date: 20170516
  Receipt Date: 20170516
  Transmission Date: 20170830
  Serious: No
  Sender: FDA-Public Use
  Company Number: None

PATIENT
  Age: 3 Year
  Sex: Male

DRUGS (5)
  1. ASPIRIN. [Concomitant]
     Active Substance: ASPIRIN
  2. FUROSEMIDE. [Concomitant]
     Active Substance: FUROSEMIDE
  3. TRACLEER [Suspect]
     Active Substance: BOSENTAN
     Indication: PULMONARY ARTERIAL HYPERTENSION
     Dosage: 62.5MG ? TAB BID ORAL
     Route: 048
     Dates: start: 20170511
  4. TADALAFIL [Concomitant]
     Active Substance: TADALAFIL
  5. GENERLAC [Concomitant]
     Active Substance: LACTULOSE

REACTIONS (1)
  - Off label use [None]

NARRATIVE: CASE EVENT DATE: 20170510
